FAERS Safety Report 6489313-X (Version None)
Quarter: 2009Q4

REPORT INFORMATION
  Report Type: 
  Country: None (occurrence: None)
  Receive Date: 20091210
  Receipt Date: 20091007
  Transmission Date: 20100525
  Serious: No
  Sender: FDA-Public Use
  Company Number: US-AMGEN-KDL368001

PATIENT
  Sex: Male

DRUGS (1)
  1. ENBREL [Suspect]
     Indication: PSORIASIS
     Route: 058

REACTIONS (6)
  - DISTURBANCE IN ATTENTION [None]
  - FEELING JITTERY [None]
  - HEADACHE [None]
  - NERVE COMPRESSION [None]
  - PAIN [None]
  - SINUS DISORDER [None]
